FAERS Safety Report 12757704 (Version 1)
Quarter: 2016Q3

REPORT INFORMATION
  Report Type: Spontaneous
  Country: CH (occurrence: CH)
  Receive Date: 20160919
  Receipt Date: 20160919
  Transmission Date: 20161109
  Serious: Yes (Hospitalization, Other)
  Sender: FDA-Public Use
  Company Number: PHHY2016CH125817

PATIENT
  Age: 85 Year

DRUGS (2)
  1. VOTRIENT [Suspect]
     Active Substance: PAZOPANIB HYDROCHLORIDE
     Dosage: 400 MG, BID
     Route: 065
  2. VOTRIENT [Suspect]
     Active Substance: PAZOPANIB HYDROCHLORIDE
     Indication: CLEAR CELL RENAL CELL CARCINOMA
     Dosage: 400 MG, QD
     Route: 065
     Dates: start: 20150706

REACTIONS (9)
  - Inappropriate antidiuretic hormone secretion [Unknown]
  - Renal haemorrhage [Unknown]
  - Pleural effusion [Unknown]
  - Renal haematoma [Not Recovered/Not Resolved]
  - Urinary tract infection [Unknown]
  - Atelectasis [Unknown]
  - Asthenia [Unknown]
  - Hypokalaemia [Unknown]
  - Hyponatraemia [Unknown]
